FAERS Safety Report 17496304 (Version 2)
Quarter: 2020Q2

REPORT INFORMATION
  Report Type: Spontaneous
  Country: US (occurrence: US)
  Receive Date: 20200303
  Receipt Date: 20200427
  Transmission Date: 20200713
  Serious: Yes (Death, Hospitalization, Other)
  Sender: FDA-Public Use
  Company Number: US-009507513-2002USA010966

PATIENT
  Sex: Male
  Weight: 87.08 kg

DRUGS (2)
  1. OXALIPLATIN. [Suspect]
     Active Substance: OXALIPLATIN
     Dosage: UNK
  2. JANUMET [Suspect]
     Active Substance: METFORMIN HYDROCHLORIDE\SITAGLIPTIN PHOSPHATE
     Dosage: 50-1000 MG, TWICE DAILY
     Route: 048
     Dates: start: 20150123, end: 201912

REACTIONS (34)
  - Death [Fatal]
  - Lymphangiosis carcinomatosa [Unknown]
  - Metastases to spine [Unknown]
  - Renal mass [Unknown]
  - Metastases to retroperitoneum [Unknown]
  - Degenerative bone disease [Unknown]
  - Arteriosclerosis [Unknown]
  - Lung opacity [Unknown]
  - Metastases to thorax [Unknown]
  - Tumour invasion [Unknown]
  - Ascites [Unknown]
  - Prostatomegaly [Unknown]
  - Pruritus [Recovering/Resolving]
  - Thrombosis [Unknown]
  - Metastases to lymph nodes [Unknown]
  - Neuropathy peripheral [Unknown]
  - Inguinal hernia [Unknown]
  - Insomnia [Unknown]
  - Anxiety [Unknown]
  - Pleural effusion [Unknown]
  - Umbilical hernia [Unknown]
  - Anaemia [Unknown]
  - Metastases to pleura [Unknown]
  - Depression [Unknown]
  - Nausea [Recovering/Resolving]
  - Metastases to liver [Unknown]
  - Hot flush [Recovering/Resolving]
  - Drug hypersensitivity [Recovering/Resolving]
  - Pancreatic carcinoma stage IV [Unknown]
  - Deep vein thrombosis [Unknown]
  - Metastases to lung [Unknown]
  - Metastases to abdominal cavity [Unknown]
  - Pneumonia [Recovering/Resolving]
  - Lung consolidation [Unknown]

NARRATIVE: CASE EVENT DATE: 201710
